FAERS Safety Report 9549365 (Version 1)
Quarter: 2013Q3

REPORT INFORMATION
  Report Type: Spontaneous
  Country: US (occurrence: US)
  Receive Date: 20130924
  Receipt Date: 20130924
  Transmission Date: 20140515
  Serious: Yes (Other)
  Sender: FDA-Public Use
  Company Number: US-BAYER-2013-115063

PATIENT
  Age: 24 Year
  Sex: Female

DRUGS (2)
  1. MIRENA [Suspect]
     Indication: MENORRHAGIA
     Dosage: 20 MCG/24HR, CONT
     Route: 015
     Dates: start: 20130730
  2. MIRENA [Suspect]
     Indication: CONTRACEPTION

REACTIONS (8)
  - Device dislocation [None]
  - Nausea [Unknown]
  - Dyspepsia [Unknown]
  - Fatigue [Unknown]
  - Pollakiuria [Unknown]
  - Alopecia [Unknown]
  - Abdominal pain [Unknown]
  - Breast discharge [Unknown]
